FAERS Safety Report 20395778 (Version 1)
Quarter: 2022Q1

REPORT INFORMATION
  Report Type: Spontaneous
  Country: CN (occurrence: CN)
  Receive Date: 20220130
  Receipt Date: 20220130
  Transmission Date: 20220423
  Serious: Yes (Other)
  Sender: FDA-Public Use
  Company Number: None

PATIENT
  Sex: Female
  Weight: 82 kg

DRUGS (2)
  1. OLANZAPINE [Suspect]
     Active Substance: OLANZAPINE
     Indication: Schizophrenia
     Dosage: 5MG,BID
     Route: 048
     Dates: start: 20211113
  2. OLANZAPINE [Suspect]
     Active Substance: OLANZAPINE
     Dosage: OLANZAPINE SLOWLY INCREASED TO 5 MG (NOON) AND 15 MG (EVENING) ORALLY
     Route: 048
     Dates: end: 20220101

REACTIONS (1)
  - Extrapyramidal disorder [Recovering/Resolving]

NARRATIVE: CASE EVENT DATE: 20220101
